FAERS Safety Report 9782709 (Version 4)
Quarter: 2015Q1

REPORT INFORMATION
  Report Type: Report from Study
  Country: ES (occurrence: ES)
  Receive Date: 20131226
  Receipt Date: 20150226
  Transmission Date: 20150721
  Serious: Yes (Other)
  Sender: FDA-Public Use
  Company Number: PHHO2012ES009651

PATIENT
  Age: 49 Year
  Sex: Female
  Weight: 77 kg

DRUGS (1)
  1. SOM230 [Suspect]
     Active Substance: PASIREOTIDE
     Indication: ACRAL OVERGROWTH
     Dosage: DOSE BLINDED
     Route: 030
     Dates: start: 20120117

REACTIONS (2)
  - Anaemia [Recovered/Resolved]
  - Hyperglycaemia [Not Recovered/Not Resolved]

NARRATIVE: CASE EVENT DATE: 20120321
